FAERS Safety Report 22105493 (Version 1)
Quarter: 2023Q1

REPORT INFORMATION
  Report Type: Spontaneous
  Country: US (occurrence: US)
  Receive Date: 20230317
  Receipt Date: 20230317
  Transmission Date: 20230418
  Serious: Yes (Hospitalization)
  Sender: FDA-Public Use
  Company Number: US-STRIDES ARCOLAB LIMITED-2023SP003216

PATIENT
  Age: 71 Year
  Sex: Male

DRUGS (7)
  1. PREDNISOLONE [Suspect]
     Active Substance: PREDNISOLONE
     Indication: Immunosuppressant drug therapy
     Dosage: UNK, DAILY
     Route: 065
  2. PREDNISOLONE [Suspect]
     Active Substance: PREDNISOLONE
     Indication: Renal transplant
  3. MYCOPHENOLATE MOFETIL [Suspect]
     Active Substance: MYCOPHENOLATE MOFETIL
     Indication: Immunosuppressant drug therapy
     Dosage: UNK, TWO TIMES PER DAY (BID)
     Route: 065
  4. MYCOPHENOLATE MOFETIL [Suspect]
     Active Substance: MYCOPHENOLATE MOFETIL
     Indication: Renal transplant
  5. BELATACEPT [Suspect]
     Active Substance: BELATACEPT
     Indication: Immunosuppressant drug therapy
     Dosage: UNK, ONCE A MONTH
     Route: 042
  6. BELATACEPT [Suspect]
     Active Substance: BELATACEPT
     Indication: Renal transplant
  7. EPSOM SALT [Concomitant]
     Active Substance: MAGNESIUM SULFATE
     Indication: Balneotherapy
     Dosage: UNK
     Route: 065

REACTIONS (2)
  - Osteomyelitis acute [Unknown]
  - Mycobacterium haemophilum infection [Unknown]
